FAERS Safety Report 20055703 (Version 1)
Quarter: 2021Q4

REPORT INFORMATION
  Report Type: Report from Study
  Country: HN (occurrence: HN)
  Receive Date: 20211110
  Receipt Date: 20211110
  Transmission Date: 20220303
  Serious: Yes (Other)
  Sender: FDA-Public Use
  Company Number: HN-NOVARTISPH-NVSC2021HN254055

PATIENT
  Age: 69 Year
  Sex: Male

DRUGS (1)
  1. EXFORGE [Suspect]
     Active Substance: AMLODIPINE BESYLATE\VALSARTAN
     Indication: Product used for unknown indication
     Dosage: 1 DF (5/320 MG) APPROXIMATELY A MONTH AND A HALF AGO
     Route: 065

REACTIONS (4)
  - Loss of consciousness [Recovering/Resolving]
  - Illness [Unknown]
  - Hypertension [Unknown]
  - Fatigue [Unknown]
